FAERS Safety Report 24957662 (Version 2)
Quarter: 2025Q2

REPORT INFORMATION
  Report Type: Spontaneous
  Country: US (occurrence: US)
  Receive Date: 20250212
  Receipt Date: 20250506
  Transmission Date: 20250717
  Serious: No
  Sender: ELI LILLY AND COMPANY
  Company Number: US-ELI_LILLY_AND_COMPANY-US202502002990

PATIENT
  Sex: Female
  Weight: 41.9 kg

DRUGS (13)
  1. KISUNLA [Suspect]
     Active Substance: DONANEMAB-AZBT
     Indication: Cognitive disorder
     Route: 042
     Dates: start: 20250103
  2. KISUNLA [Suspect]
     Active Substance: DONANEMAB-AZBT
     Indication: Dementia Alzheimer^s type
     Dosage: 350 MG, MONTHLY (1/M) (2ND INFUSION)
     Route: 042
     Dates: start: 20250228
  3. KISUNLA [Suspect]
     Active Substance: DONANEMAB-AZBT
     Dosage: 350 MG, MONTHLY (1/M) (3RD INFUSION)
     Route: 042
     Dates: start: 20250328
  4. LECANEMAB [Concomitant]
     Active Substance: LECANEMAB
     Indication: Cognitive disorder
  5. VORTIOXETINE [Concomitant]
     Active Substance: VORTIOXETINE
     Indication: Product used for unknown indication
     Dosage: UNK, DAILY
     Route: 065
  6. ADDERALL [Concomitant]
     Active Substance: AMPHETAMINE ASPARTATE\AMPHETAMINE SULFATE\DEXTROAMPHETAMINE SACCHARATE\DEXTROAMPHETAMINE SULFATE
     Indication: Product used for unknown indication
     Dosage: 20 MG, BID
  7. SPIRONOLACTONE [Concomitant]
     Active Substance: SPIRONOLACTONE
     Indication: Product used for unknown indication
     Dosage: 50 MG, DAILY
  8. TIMOLOL [Concomitant]
     Active Substance: TIMOLOL
     Indication: Product used for unknown indication
     Route: 047
  9. LIOTHYRONINE [Concomitant]
     Active Substance: LIOTHYRONINE
     Indication: Product used for unknown indication
     Dosage: 2.5 UG, DAILY
  10. MIRALAX [Concomitant]
     Active Substance: POLYETHYLENE GLYCOL 3350
     Indication: Product used for unknown indication
     Dosage: 17 G, DAILY
  11. RISPERIDONE [Concomitant]
     Active Substance: RISPERIDONE
     Indication: Product used for unknown indication
     Dosage: 1.5 MG, EVERY 8 HRS
  12. BUPROPION HYDROCHLORIDE XL [Concomitant]
     Active Substance: BUPROPION HYDROCHLORIDE
     Dosage: UNK, EACH MORNING
  13. LEVOTHYROXINE [Concomitant]
     Active Substance: LEVOTHYROXINE
     Dosage: 88 UG, EACH MORNING

REACTIONS (4)
  - Amyloid related imaging abnormalities [Recovered/Resolved]
  - Cerebral sulcal prominence [Unknown]
  - Cerebral small vessel ischaemic disease [Unknown]
  - Off label use [Unknown]
